FAERS Safety Report 24831283 (Version 1)
Quarter: 2025Q1

REPORT INFORMATION
  Report Type: Spontaneous
  Country: JP (occurrence: JP)
  Receive Date: 20250110
  Receipt Date: 20250110
  Transmission Date: 20250408
  Serious: Yes (Other)
  Sender: SANOFI AVENTIS
  Company Number: JP-SA-2025SA006605

PATIENT
  Age: 69 Year
  Sex: Female

DRUGS (4)
  1. ARAVA [Suspect]
     Active Substance: LEFLUNOMIDE
     Indication: Arthralgia
     Dates: start: 20031029, end: 200401
  2. PREDNISOLONE [Concomitant]
     Active Substance: PREDNISOLONE
     Indication: Rheumatoid arthritis
     Route: 048
     Dates: start: 1997
  3. PREDNISOLONE [Concomitant]
     Active Substance: PREDNISOLONE
     Indication: Interstitial lung disease
     Route: 048
  4. METHYLPREDNISOLONE [Concomitant]
     Active Substance: METHYLPREDNISOLONE
     Indication: Interstitial lung disease
     Dates: start: 2000

REACTIONS (9)
  - Anaemia megaloblastic [Recovered/Resolved]
  - Anaemia [Recovered/Resolved]
  - Lymphopenia [Recovered/Resolved]
  - Thrombocytopenia [Recovered/Resolved]
  - Pancytopenia [Recovered/Resolved]
  - Poikilocytosis [Recovered/Resolved]
  - Anisocytosis [Recovered/Resolved]
  - Anaemia macrocytic [Recovered/Resolved]
  - Schistocytosis [Recovered/Resolved]
